FAERS Safety Report 21200509 (Version 24)
Quarter: 2024Q1

REPORT INFORMATION
  Report Type: Spontaneous
  Country: CA (occurrence: CA)
  Receive Date: 20220811
  Receipt Date: 20240315
  Transmission Date: 20240410
  Serious: Yes (Other)
  Sender: FDA-Public Use
  Company Number: CA-BAUSCH-BL-2020-022260

PATIENT
  Age: 41 Year
  Sex: Female

DRUGS (500)
  1. METRONIDAZOLE [Suspect]
     Active Substance: METRONIDAZOLE
     Indication: Product used for unknown indication
     Route: 065
  2. ALBUTEROL [Suspect]
     Active Substance: ALBUTEROL
     Indication: Product used for unknown indication
     Dosage: SALBUTAMOL
     Route: 065
  3. ALBUTEROL [Suspect]
     Active Substance: ALBUTEROL
     Dosage: SALBUTAMOL SULFATE
     Route: 065
  4. ALBUTEROL [Suspect]
     Active Substance: ALBUTEROL
     Dosage: SALBUTAMOL
     Route: 065
  5. ALBUTEROL [Suspect]
     Active Substance: ALBUTEROL
     Dosage: SALBUTAMOL HFA, METERED-DOSE (AEROSOL)
     Route: 065
  6. ALBUTEROL [Suspect]
     Active Substance: ALBUTEROL
     Dosage: SALBUTAMOL SULFATE
     Route: 065
  7. ALBUTEROL [Suspect]
     Active Substance: ALBUTEROL
     Dosage: SALBUTAMOL HFA, METERED-DOSE (AEROSOL)
     Route: 065
  8. ALBUTEROL [Suspect]
     Active Substance: ALBUTEROL
     Dosage: SALBUTAMOL
     Route: 065
  9. ALBUTEROL [Suspect]
     Active Substance: ALBUTEROL
     Dosage: SALBUTAMOL
     Route: 065
  10. ALBUTEROL [Suspect]
     Active Substance: ALBUTEROL
     Dosage: SALBUTAMOL SULFATE
     Route: 065
  11. DEXAMETHASONE [Suspect]
     Active Substance: DEXAMETHASONE
     Indication: Migraine
     Route: 065
  12. DEXAMETHASONE [Suspect]
     Active Substance: DEXAMETHASONE
     Route: 065
  13. DEXAMETHASONE [Suspect]
     Active Substance: DEXAMETHASONE
     Dosage: NOT SPECIFIED
     Route: 065
  14. DEXAMETHASONE [Suspect]
     Active Substance: DEXAMETHASONE
     Route: 065
  15. DEXAMETHASONE [Suspect]
     Active Substance: DEXAMETHASONE
     Route: 065
  16. VENLAFAXINE [Suspect]
     Active Substance: VENLAFAXINE HYDROCHLORIDE
     Indication: Migraine
     Dosage: VENLAFAXINE HYDROCHLORIDE
     Route: 065
  17. VENLAFAXINE [Suspect]
     Active Substance: VENLAFAXINE HYDROCHLORIDE
     Dosage: VENLAFAXINE HYDROCHLORIDE
     Route: 065
  18. VENLAFAXINE [Suspect]
     Active Substance: VENLAFAXINE HYDROCHLORIDE
     Dosage: VENLAFAXINE HYDROCHLORIDE
     Route: 065
  19. VENLAFAXINE [Suspect]
     Active Substance: VENLAFAXINE HYDROCHLORIDE
     Dosage: VENLAFAXINE
     Route: 065
  20. VENLAFAXINE [Suspect]
     Active Substance: VENLAFAXINE HYDROCHLORIDE
     Route: 065
  21. VENLAFAXINE [Suspect]
     Active Substance: VENLAFAXINE HYDROCHLORIDE
     Dosage: VENLAFAXINE HYDROCHLORIDE
     Route: 065
  22. VENLAFAXINE [Suspect]
     Active Substance: VENLAFAXINE HYDROCHLORIDE
     Dosage: VENLAFAXINE
     Route: 065
  23. VENLAFAXINE [Suspect]
     Active Substance: VENLAFAXINE HYDROCHLORIDE
     Dosage: VENLAFAXINE
     Route: 065
  24. DEXAMETHASONE [Suspect]
     Active Substance: DEXAMETHASONE
     Indication: Migraine
     Dosage: DEXAMETHASONE SODIUM PHOSPHATE
     Route: 065
  25. DEXAMETHASONE [Suspect]
     Active Substance: DEXAMETHASONE
     Route: 065
  26. DEXAMETHASONE [Suspect]
     Active Substance: DEXAMETHASONE
     Dosage: DEXAMETHASONE SODIUM PHOSPHATE
     Route: 065
  27. DEXAMETHASONE [Suspect]
     Active Substance: DEXAMETHASONE
     Dosage: DEXAMETHASONE
     Route: 065
  28. ALBUTEROL [Suspect]
     Active Substance: ALBUTEROL
     Indication: Product used for unknown indication
     Dosage: SALBUTAMOL
     Route: 065
  29. ALBUTEROL [Suspect]
     Active Substance: ALBUTEROL
     Dosage: SALBUTAMOL SULFATE
     Route: 065
  30. TRAMADOL [Suspect]
     Active Substance: TRAMADOL\TRAMADOL HYDROCHLORIDE
     Indication: Product used for unknown indication
     Dosage: TRAMADOL HYDROCHLORIDE
     Route: 065
  31. TRAMADOL [Suspect]
     Active Substance: TRAMADOL\TRAMADOL HYDROCHLORIDE
     Dosage: TRAMADOL
     Route: 065
  32. TRAMADOL [Suspect]
     Active Substance: TRAMADOL\TRAMADOL HYDROCHLORIDE
     Dosage: TRAMADOL HYDROCHLORIDE
     Route: 065
  33. ACETAMINOPHEN [Suspect]
     Active Substance: ACETAMINOPHEN
     Indication: Migraine
     Route: 065
  34. ACETAMINOPHEN [Suspect]
     Active Substance: ACETAMINOPHEN
     Route: 065
  35. AZITHROMYCIN [Suspect]
     Active Substance: AZITHROMYCIN
     Indication: Migraine
     Route: 065
  36. AZITHROMYCIN [Suspect]
     Active Substance: AZITHROMYCIN
     Route: 065
  37. AZITHROMYCIN [Suspect]
     Active Substance: AZITHROMYCIN
     Route: 065
  38. AZITHROMYCIN [Suspect]
     Active Substance: AZITHROMYCIN
     Route: 065
  39. AZITHROMYCIN [Suspect]
     Active Substance: AZITHROMYCIN
     Route: 065
  40. AZITHROMYCIN [Suspect]
     Active Substance: AZITHROMYCIN
     Route: 065
  41. AZITHROMYCIN [Suspect]
     Active Substance: AZITHROMYCIN
     Route: 065
  42. AZITHROMYCIN [Suspect]
     Active Substance: AZITHROMYCIN
     Route: 065
  43. AZITHROMYCIN [Suspect]
     Active Substance: AZITHROMYCIN
     Dosage: AZITHROMYCIN DIHYDRATE
     Route: 065
  44. CIPROFLOXACIN [Suspect]
     Active Substance: CIPROFLOXACIN
     Indication: Migraine
     Dosage: CIPROFLOXACIN
     Route: 065
  45. CIPROFLOXACIN [Suspect]
     Active Substance: CIPROFLOXACIN
     Route: 065
  46. CIPROFLOXACIN [Suspect]
     Active Substance: CIPROFLOXACIN
     Dosage: CIPROFLOXACIN
     Route: 065
  47. CIPROFLOXACIN [Suspect]
     Active Substance: CIPROFLOXACIN
     Dosage: 2 EVERY 1 DAY
     Route: 065
  48. CIPROFLOXACIN [Suspect]
     Active Substance: CIPROFLOXACIN
     Dosage: CIPROFLOXACIN
     Route: 065
  49. CIPROFLOXACIN [Suspect]
     Active Substance: CIPROFLOXACIN
     Dosage: CIPROFLOXACIN HYDROCHLORIDE
     Route: 065
  50. CIPROFLOXACIN [Suspect]
     Active Substance: CIPROFLOXACIN
     Dosage: CIPROFLOXACIN HYDROCHLORIDE
     Route: 065
  51. CIPROFLOXACIN [Suspect]
     Active Substance: CIPROFLOXACIN
     Dosage: CIPROFLOXACIN HYDROCHLORIDE
     Route: 065
  52. CIPROFLOXACIN [Suspect]
     Active Substance: CIPROFLOXACIN
     Dosage: CIPROFLOXACIN HYDROCHLORIDE
     Route: 048
  53. CIPROFLOXACIN [Suspect]
     Active Substance: CIPROFLOXACIN
     Dosage: CIPROFLOXACIN HYDROCHLORIDE
     Route: 065
  54. CIPROFLOXACIN [Suspect]
     Active Substance: CIPROFLOXACIN
     Dosage: CIPROFLOXACIN LACTATE
     Route: 065
  55. CIPROFLOXACIN [Suspect]
     Active Substance: CIPROFLOXACIN
     Dosage: CIPROFLOXACIN LACTATE
     Route: 065
  56. CIPROFLOXACIN [Suspect]
     Active Substance: CIPROFLOXACIN
     Dosage: CIPROFLOXACIN LACTATE
     Route: 065
  57. CIPROFLOXACIN [Suspect]
     Active Substance: CIPROFLOXACIN
     Dosage: CIPROFLOXACIN
     Route: 048
  58. CIPROFLOXACIN [Suspect]
     Active Substance: CIPROFLOXACIN
     Dosage: CIPROFLOXACIN
     Route: 065
  59. CIPROFLOXACIN [Suspect]
     Active Substance: CIPROFLOXACIN
     Dosage: CIPROFLOXACIN
     Route: 065
  60. CIPROFLOXACIN [Suspect]
     Active Substance: CIPROFLOXACIN
     Dosage: CIPROFLOXACIN HYDROCHLORIDE
     Route: 065
  61. CIPROFLOXACIN [Suspect]
     Active Substance: CIPROFLOXACIN
     Dosage: CIPROFLOXACIN HYDROCHLORIDE
     Route: 065
  62. CIPROFLOXACIN [Suspect]
     Active Substance: CIPROFLOXACIN
     Dosage: CIPROFLOXACIN HYDROCHLORIDE
     Route: 065
  63. CIPROFLOXACIN [Suspect]
     Active Substance: CIPROFLOXACIN
     Dosage: CIPROFLOXACIN LACTATE
     Route: 065
  64. CLARITHROMYCIN [Suspect]
     Active Substance: CLARITHROMYCIN
     Indication: Product used for unknown indication
     Route: 065
  65. CLARITHROMYCIN [Suspect]
     Active Substance: CLARITHROMYCIN
     Route: 065
  66. CLARITHROMYCIN [Suspect]
     Active Substance: CLARITHROMYCIN
     Dosage: NOT SPECIFIED
     Route: 065
  67. CLARITHROMYCIN [Suspect]
     Active Substance: CLARITHROMYCIN
     Route: 065
  68. CLARITHROMYCIN [Suspect]
     Active Substance: CLARITHROMYCIN
     Dosage: NOT SPECIFIED
     Route: 065
  69. CODEINE [Suspect]
     Active Substance: CODEINE
     Indication: Migraine
     Route: 065
  70. CODEINE [Suspect]
     Active Substance: CODEINE
     Dosage: CODEINE
     Route: 065
  71. CODEINE [Suspect]
     Active Substance: CODEINE
     Dosage: CODEINE SULFATE
     Route: 065
  72. CODEINE [Suspect]
     Active Substance: CODEINE
     Route: 065
  73. DULOXETINE [Suspect]
     Active Substance: DULOXETINE
     Indication: Migraine
     Dosage: DULOXETINE
     Route: 065
  74. DULOXETINE [Suspect]
     Active Substance: DULOXETINE
     Dosage: DULOXETINE HYDROCHLORIDE, CAPSULE, DELAYED RELEASE
     Route: 065
  75. DULOXETINE [Suspect]
     Active Substance: DULOXETINE
     Dosage: DULOXETINE HYDROCHLORIDE
     Route: 065
  76. DULOXETINE [Suspect]
     Active Substance: DULOXETINE
     Dosage: DULOXETINE HYDROCHLORIDE CAPSULE, DELAYED RELEASE
     Route: 065
  77. FLUCONAZOLE [Suspect]
     Active Substance: FLUCONAZOLE
     Indication: Migraine
     Route: 065
  78. FLUCONAZOLE [Suspect]
     Active Substance: FLUCONAZOLE
     Dosage: NOT SPECIFIED
     Route: 065
  79. FLUCONAZOLE [Suspect]
     Active Substance: FLUCONAZOLE
     Route: 065
  80. FLUCONAZOLE [Suspect]
     Active Substance: FLUCONAZOLE
     Route: 065
  81. HYDROMORPHONE [Suspect]
     Active Substance: HYDROMORPHONE
     Indication: Migraine
     Route: 065
  82. HYDROMORPHONE [Suspect]
     Active Substance: HYDROMORPHONE
     Route: 065
  83. HYDROMORPHONE [Suspect]
     Active Substance: HYDROMORPHONE
     Route: 065
  84. HYDROMORPHONE [Suspect]
     Active Substance: HYDROMORPHONE
     Route: 065
  85. HYDROMORPHONE [Suspect]
     Active Substance: HYDROMORPHONE
     Route: 065
  86. HYDROMORPHONE [Suspect]
     Active Substance: HYDROMORPHONE
     Route: 065
  87. HYDROMORPHONE [Suspect]
     Active Substance: HYDROMORPHONE
     Route: 065
  88. HYDROMORPHONE [Suspect]
     Active Substance: HYDROMORPHONE
     Route: 065
  89. HYDROMORPHONE [Suspect]
     Active Substance: HYDROMORPHONE
     Route: 065
  90. HYDROMORPHONE [Suspect]
     Active Substance: HYDROMORPHONE
     Route: 065
  91. HYDROMORPHONE [Suspect]
     Active Substance: HYDROMORPHONE
     Route: 065
  92. HYDROMORPHONE [Suspect]
     Active Substance: HYDROMORPHONE
     Route: 065
  93. HYDROMORPHONE [Suspect]
     Active Substance: HYDROMORPHONE
     Route: 065
  94. HYDROMORPHONE [Suspect]
     Active Substance: HYDROMORPHONE
     Route: 065
  95. HYDROMORPHONE [Suspect]
     Active Substance: HYDROMORPHONE
     Route: 065
  96. HYDROMORPHONE [Suspect]
     Active Substance: HYDROMORPHONE
     Route: 005
  97. HYDROMORPHONE [Suspect]
     Active Substance: HYDROMORPHONE
     Dosage: HYDROMORPHONE HYDROCHLORIDE
     Route: 065
  98. HYDROMORPHONE [Suspect]
     Active Substance: HYDROMORPHONE
     Route: 065
  99. HYDROMORPHONE [Suspect]
     Active Substance: HYDROMORPHONE
     Route: 065
  100. HYDROMORPHONE [Suspect]
     Active Substance: HYDROMORPHONE
     Route: 065
  101. HYDROMORPHONE [Suspect]
     Active Substance: HYDROMORPHONE
     Route: 065
  102. HYDROMORPHONE [Suspect]
     Active Substance: HYDROMORPHONE
     Route: 065
  103. HYDROMORPHONE [Suspect]
     Active Substance: HYDROMORPHONE
     Route: 065
  104. HYDROMORPHONE [Suspect]
     Active Substance: HYDROMORPHONE
     Dosage: HYDROMORPHONE HYDROCHLORIDE
     Route: 065
  105. HYDROMORPHONE [Suspect]
     Active Substance: HYDROMORPHONE
     Dosage: HYDROMORPHONE
     Route: 065
  106. HYDROMORPHONE [Suspect]
     Active Substance: HYDROMORPHONE
     Dosage: HYDROMORPHONE
     Route: 065
  107. HYDROMORPHONE [Suspect]
     Active Substance: HYDROMORPHONE
     Dosage: HYDROMORPHONE
     Route: 065
  108. HYDROMORPHONE [Suspect]
     Active Substance: HYDROMORPHONE
     Dosage: HYDROMORPHONE HYDROCHLORIDE
     Route: 065
  109. HYDROMORPHONE [Suspect]
     Active Substance: HYDROMORPHONE
     Dosage: HYDROMORPHONE HYDROCHLORIDE
     Route: 005
  110. INDOMETHACIN [Suspect]
     Active Substance: INDOMETHACIN
     Indication: Migraine
     Route: 054
  111. INDOMETHACIN [Suspect]
     Active Substance: INDOMETHACIN
     Route: 054
  112. INDOMETHACIN [Suspect]
     Active Substance: INDOMETHACIN
     Route: 054
  113. INDOMETHACIN [Suspect]
     Active Substance: INDOMETHACIN
     Route: 054
  114. INDOMETHACIN [Suspect]
     Active Substance: INDOMETHACIN
     Route: 054
  115. INDOMETHACIN [Suspect]
     Active Substance: INDOMETHACIN
     Route: 054
  116. INDOMETHACIN [Suspect]
     Active Substance: INDOMETHACIN
     Route: 054
  117. INDOMETHACIN [Suspect]
     Active Substance: INDOMETHACIN
     Route: 054
  118. INDOMETHACIN [Suspect]
     Active Substance: INDOMETHACIN
     Route: 054
  119. INDOMETHACIN [Suspect]
     Active Substance: INDOMETHACIN
     Route: 054
  120. INDOMETHACIN [Suspect]
     Active Substance: INDOMETHACIN
     Route: 054
  121. INDOMETHACIN [Suspect]
     Active Substance: INDOMETHACIN
     Route: 054
  122. INDOMETHACIN [Suspect]
     Active Substance: INDOMETHACIN
     Route: 054
  123. INDOMETHACIN [Suspect]
     Active Substance: INDOMETHACIN
     Route: 054
  124. INDOMETHACIN [Suspect]
     Active Substance: INDOMETHACIN
     Route: 054
  125. LISINOPRIL [Suspect]
     Active Substance: LISINOPRIL
     Indication: Migraine
     Route: 065
  126. LISINOPRIL [Suspect]
     Active Substance: LISINOPRIL
     Route: 065
  127. LISINOPRIL [Suspect]
     Active Substance: LISINOPRIL
     Route: 065
  128. LISINOPRIL [Suspect]
     Active Substance: LISINOPRIL
     Route: 065
  129. LISINOPRIL [Suspect]
     Active Substance: LISINOPRIL
     Dosage: LISINOPRIL DIHYDRATE
     Route: 065
  130. LISINOPRIL [Suspect]
     Active Substance: LISINOPRIL
     Route: 065
  131. MOMETASONE [Suspect]
     Active Substance: MOMETASONE
     Indication: Migraine
     Dosage: MOMETASONE; SPRAY, METERED DOSE
     Route: 065
  132. MOMETASONE [Suspect]
     Active Substance: MOMETASONE
     Dosage: MOMETASONE
     Route: 065
  133. MOMETASONE [Suspect]
     Active Substance: MOMETASONE
     Dosage: MOMETASONE
     Route: 065
  134. MOMETASONE [Suspect]
     Active Substance: MOMETASONE
     Dosage: MOMETASONE
     Route: 065
  135. MOMETASONE [Suspect]
     Active Substance: MOMETASONE
     Dosage: MOMETASONE
     Route: 065
  136. MOMETASONE [Suspect]
     Active Substance: MOMETASONE
     Dosage: MOMETASONE
     Route: 065
  137. MOMETASONE [Suspect]
     Active Substance: MOMETASONE
     Dosage: MOMETASONE FUROATE
     Route: 055
  138. MOMETASONE [Suspect]
     Active Substance: MOMETASONE
     Dosage: MOMETASONE FUROATE
     Route: 055
  139. MOMETASONE [Suspect]
     Active Substance: MOMETASONE
     Dosage: MOMETASONE FUROATE
     Route: 065
  140. MOMETASONE [Suspect]
     Active Substance: MOMETASONE
     Dosage: MOMETASONE FUROATE
     Route: 065
  141. MOMETASONE [Suspect]
     Active Substance: MOMETASONE
     Dosage: MOMETASONE FUROATE
     Route: 065
  142. MOMETASONE [Suspect]
     Active Substance: MOMETASONE
     Dosage: MOMETASONE FUROATE
     Route: 065
  143. MOMETASONE [Suspect]
     Active Substance: MOMETASONE
     Dosage: MOMETASONE FUROATE
     Route: 065
  144. MOMETASONE [Suspect]
     Active Substance: MOMETASONE
     Dosage: MOMETASONE FUROATE
     Route: 065
  145. RABEPRAZOLE [Suspect]
     Active Substance: RABEPRAZOLE
     Indication: Migraine
     Dosage: RABEPRAZOLE SODIUM
     Route: 065
  146. RABEPRAZOLE [Suspect]
     Active Substance: RABEPRAZOLE
     Route: 065
  147. RABEPRAZOLE [Suspect]
     Active Substance: RABEPRAZOLE
     Route: 065
  148. RABEPRAZOLE [Suspect]
     Active Substance: RABEPRAZOLE
     Route: 065
  149. RABEPRAZOLE [Suspect]
     Active Substance: RABEPRAZOLE
     Route: 065
  150. RABEPRAZOLE [Suspect]
     Active Substance: RABEPRAZOLE
     Route: 065
  151. RABEPRAZOLE [Suspect]
     Active Substance: RABEPRAZOLE
     Route: 065
  152. RABEPRAZOLE [Suspect]
     Active Substance: RABEPRAZOLE
     Route: 065
  153. RABEPRAZOLE [Suspect]
     Active Substance: RABEPRAZOLE
     Route: 065
  154. RABEPRAZOLE [Suspect]
     Active Substance: RABEPRAZOLE
     Route: 065
  155. RABEPRAZOLE [Suspect]
     Active Substance: RABEPRAZOLE
     Route: 065
  156. RABEPRAZOLE [Suspect]
     Active Substance: RABEPRAZOLE
     Route: 065
  157. RABEPRAZOLE [Suspect]
     Active Substance: RABEPRAZOLE
     Route: 065
  158. RABEPRAZOLE [Suspect]
     Active Substance: RABEPRAZOLE
     Route: 065
  159. RABEPRAZOLE [Suspect]
     Active Substance: RABEPRAZOLE
     Route: 065
  160. RABEPRAZOLE [Suspect]
     Active Substance: RABEPRAZOLE
     Route: 065
  161. RABEPRAZOLE [Suspect]
     Active Substance: RABEPRAZOLE
     Route: 065
  162. RABEPRAZOLE [Suspect]
     Active Substance: RABEPRAZOLE
     Route: 065
  163. RABEPRAZOLE [Suspect]
     Active Substance: RABEPRAZOLE
     Route: 065
  164. RABEPRAZOLE [Suspect]
     Active Substance: RABEPRAZOLE
     Route: 065
  165. RABEPRAZOLE [Suspect]
     Active Substance: RABEPRAZOLE
     Dosage: RABEPRAZOLE SODIUM
     Route: 065
  166. RABEPRAZOLE [Suspect]
     Active Substance: RABEPRAZOLE
     Route: 065
  167. RABEPRAZOLE [Suspect]
     Active Substance: RABEPRAZOLE
     Route: 048
  168. RABEPRAZOLE [Suspect]
     Active Substance: RABEPRAZOLE
     Route: 048
  169. RABEPRAZOLE [Suspect]
     Active Substance: RABEPRAZOLE
     Dosage: RABEPRAZOLE
     Route: 048
  170. RABEPRAZOLE [Suspect]
     Active Substance: RABEPRAZOLE
     Dosage: RABEPRAZOLE
     Route: 048
  171. RABEPRAZOLE [Suspect]
     Active Substance: RABEPRAZOLE
     Dosage: RABEPRAZOLE SODIUM
     Route: 065
  172. RABEPRAZOLE [Suspect]
     Active Substance: RABEPRAZOLE
     Dosage: RABEPRAZOLE
     Route: 048
  173. RABEPRAZOLE [Suspect]
     Active Substance: RABEPRAZOLE
     Dosage: RABEPRAZOLE
     Route: 065
  174. RABEPRAZOLE [Suspect]
     Active Substance: RABEPRAZOLE
     Dosage: RABEPRAZOLE
     Route: 065
  175. RABEPRAZOLE [Suspect]
     Active Substance: RABEPRAZOLE
     Dosage: RABEPRAZOLE
     Route: 065
  176. TOPIRAMATE [Suspect]
     Active Substance: TOPIRAMATE
     Indication: Migraine
     Dosage: NOT SPECIFIED
     Route: 065
  177. TRIMETHOPRIM [Suspect]
     Active Substance: TRIMETHOPRIM
     Indication: Product used for unknown indication
     Route: 065
  178. TRIMETHOPRIM [Suspect]
     Active Substance: TRIMETHOPRIM
     Route: 065
  179. TRIMETHOPRIM [Suspect]
     Active Substance: TRIMETHOPRIM
     Route: 065
  180. TRIMETHOPRIM [Suspect]
     Active Substance: TRIMETHOPRIM
     Route: 065
  181. ZOPICLONE [Suspect]
     Active Substance: ZOPICLONE
     Indication: Migraine
     Route: 065
  182. ZOPICLONE [Suspect]
     Active Substance: ZOPICLONE
     Route: 048
  183. ZOPICLONE [Suspect]
     Active Substance: ZOPICLONE
     Route: 065
  184. ZOPICLONE [Suspect]
     Active Substance: ZOPICLONE
     Route: 065
  185. ZOPICLONE [Suspect]
     Active Substance: ZOPICLONE
     Route: 065
  186. ZOPICLONE [Suspect]
     Active Substance: ZOPICLONE
     Route: 065
  187. ZOPICLONE [Suspect]
     Active Substance: ZOPICLONE
     Route: 065
  188. ZOPICLONE [Suspect]
     Active Substance: ZOPICLONE
     Route: 065
  189. ZOPICLONE [Suspect]
     Active Substance: ZOPICLONE
     Route: 065
  190. ZOPICLONE [Suspect]
     Active Substance: ZOPICLONE
     Route: 065
  191. ZOPICLONE [Suspect]
     Active Substance: ZOPICLONE
     Route: 065
  192. ZOPICLONE [Suspect]
     Active Substance: ZOPICLONE
     Route: 065
  193. ZOPICLONE [Suspect]
     Active Substance: ZOPICLONE
     Route: 065
  194. ZOPICLONE [Suspect]
     Active Substance: ZOPICLONE
     Route: 065
  195. ZOPICLONE [Suspect]
     Active Substance: ZOPICLONE
     Route: 065
  196. ZOPICLONE [Suspect]
     Active Substance: ZOPICLONE
     Route: 065
  197. ZOPICLONE [Suspect]
     Active Substance: ZOPICLONE
     Route: 065
  198. ZOPICLONE [Suspect]
     Active Substance: ZOPICLONE
     Route: 065
  199. ZOPICLONE [Suspect]
     Active Substance: ZOPICLONE
     Route: 065
  200. ZOPICLONE [Suspect]
     Active Substance: ZOPICLONE
     Route: 065
  201. ZOPICLONE [Suspect]
     Active Substance: ZOPICLONE
     Route: 065
  202. ZOPICLONE [Suspect]
     Active Substance: ZOPICLONE
     Route: 065
  203. ZOPICLONE [Suspect]
     Active Substance: ZOPICLONE
     Route: 065
  204. ZOPICLONE [Suspect]
     Active Substance: ZOPICLONE
     Route: 065
  205. ZOPICLONE [Suspect]
     Active Substance: ZOPICLONE
     Route: 065
  206. ZOPICLONE [Suspect]
     Active Substance: ZOPICLONE
     Route: 065
  207. ZOPICLONE [Suspect]
     Active Substance: ZOPICLONE
     Route: 065
  208. ZOPICLONE [Suspect]
     Active Substance: ZOPICLONE
     Route: 065
  209. ZOPICLONE [Suspect]
     Active Substance: ZOPICLONE
     Route: 065
  210. ZOPICLONE [Suspect]
     Active Substance: ZOPICLONE
     Route: 048
  211. ZOPICLONE [Suspect]
     Active Substance: ZOPICLONE
     Route: 065
  212. ZOPICLONE [Suspect]
     Active Substance: ZOPICLONE
     Route: 065
  213. SUMATRIPTAN [Suspect]
     Active Substance: SUMATRIPTAN
     Indication: Migraine
     Dosage: NOT SPECIFIED
     Route: 065
  214. SUMATRIPTAN [Suspect]
     Active Substance: SUMATRIPTAN
     Route: 065
  215. SUMATRIPTAN [Suspect]
     Active Substance: SUMATRIPTAN
     Dosage: SUMATRIPTAN SUCCINATE
     Route: 065
  216. SUMATRIPTAN [Suspect]
     Active Substance: SUMATRIPTAN
     Dosage: SUMATRIPTAN
     Route: 065
  217. SUMATRIPTAN [Suspect]
     Active Substance: SUMATRIPTAN
     Dosage: SUMATRIPTAN SUCCINATE
     Route: 065
  218. SUMATRIPTAN [Suspect]
     Active Substance: SUMATRIPTAN
     Dosage: SUMATRIPTAN SUCCINATE
     Route: 065
  219. SUMATRIPTAN [Suspect]
     Active Substance: SUMATRIPTAN
     Dosage: TARO-SUMATRIPTAN
     Route: 065
  220. SUMATRIPTAN [Suspect]
     Active Substance: SUMATRIPTAN
     Dosage: TARO-SUMATRIPTAN SOLUTION SUBCUTANEOUS
     Route: 058
  221. SUMATRIPTAN [Suspect]
     Active Substance: SUMATRIPTAN
     Dosage: TARO-SUMATRIPTAN
     Route: 065
  222. SERTRALINE [Suspect]
     Active Substance: SERTRALINE HYDROCHLORIDE
     Indication: Migraine
     Route: 065
  223. SERTRALINE [Suspect]
     Active Substance: SERTRALINE HYDROCHLORIDE
     Dosage: SERTRALINE
     Route: 065
  224. SERTRALINE [Suspect]
     Active Substance: SERTRALINE HYDROCHLORIDE
     Dosage: SERTRALINE HYDROCHLORIDE
     Route: 065
  225. PROPRANOLOL [Suspect]
     Active Substance: PROPRANOLOL HYDROCHLORIDE
     Indication: Migraine
     Dosage: PROPRANOLOL
     Route: 065
  226. PROPRANOLOL [Suspect]
     Active Substance: PROPRANOLOL HYDROCHLORIDE
     Dosage: PROPRANOLOL
     Route: 065
  227. PROPRANOLOL [Suspect]
     Active Substance: PROPRANOLOL HYDROCHLORIDE
     Dosage: PROPRANOLOL HYDROCHLORIDE
     Route: 048
  228. PROPRANOLOL [Suspect]
     Active Substance: PROPRANOLOL HYDROCHLORIDE
     Dosage: PROPRANOLOL HYDROCHLORIDE
     Route: 048
  229. PROPRANOLOL [Suspect]
     Active Substance: PROPRANOLOL HYDROCHLORIDE
     Dosage: PROPRANOLOL
     Route: 065
  230. PROPRANOLOL [Suspect]
     Active Substance: PROPRANOLOL HYDROCHLORIDE
     Dosage: PROPRANOLOL
     Route: 065
  231. PROPRANOLOL [Suspect]
     Active Substance: PROPRANOLOL HYDROCHLORIDE
     Dosage: PROPRANOLOL HYDROCHLORIDE
     Route: 065
  232. PROPRANOLOL [Suspect]
     Active Substance: PROPRANOLOL HYDROCHLORIDE
     Dosage: PROPRANOLOL HYDROCHLORIDE
     Route: 065
  233. PROPRANOLOL [Suspect]
     Active Substance: PROPRANOLOL HYDROCHLORIDE
     Dosage: PROPRANOLOL
     Route: 065
  234. PROPRANOLOL [Suspect]
     Active Substance: PROPRANOLOL HYDROCHLORIDE
     Dosage: PROPRANOLOL
     Route: 065
  235. PROPRANOLOL [Suspect]
     Active Substance: PROPRANOLOL HYDROCHLORIDE
     Dosage: PROPRANOLOL
     Route: 048
  236. PROPRANOLOL [Suspect]
     Active Substance: PROPRANOLOL HYDROCHLORIDE
     Dosage: PROPRANOLOL
     Route: 065
  237. PROPRANOLOL [Suspect]
     Active Substance: PROPRANOLOL HYDROCHLORIDE
     Dosage: PROPRANOLOL
     Route: 048
  238. PROPRANOLOL [Suspect]
     Active Substance: PROPRANOLOL HYDROCHLORIDE
     Dosage: PROPRANOLOL HYDROCHLORIDE
     Route: 065
  239. PROPRANOLOL [Suspect]
     Active Substance: PROPRANOLOL HYDROCHLORIDE
     Dosage: PROPRANOLOL HYDROCHLORIDE
     Route: 048
  240. PROPRANOLOL [Suspect]
     Active Substance: PROPRANOLOL HYDROCHLORIDE
     Dosage: PROPRANOLOL HYDROCHLORIDE
     Route: 048
  241. PROPRANOLOL [Suspect]
     Active Substance: PROPRANOLOL HYDROCHLORIDE
     Dosage: PROPRANOLOL HYDROCHLORIDE
     Route: 048
  242. LANSOPRAZOLE [Suspect]
     Active Substance: LANSOPRAZOLE
     Indication: Migraine
     Dosage: DELAYED RELEASE CAPSULE
     Route: 065
  243. ESCITALOPRAM [Suspect]
     Active Substance: ESCITALOPRAM OXALATE
     Indication: Migraine
     Dosage: ESCITALOPRAM
     Route: 065
  244. ESCITALOPRAM [Suspect]
     Active Substance: ESCITALOPRAM OXALATE
     Dosage: ESCITALOPRAM OXALATE
     Route: 065
  245. ESCITALOPRAM [Suspect]
     Active Substance: ESCITALOPRAM OXALATE
     Dosage: ESCITALOPRAM OXALATE
     Route: 048
  246. ESCITALOPRAM [Suspect]
     Active Substance: ESCITALOPRAM OXALATE
     Dosage: ESCITALOPRAM OXALATE
     Route: 065
  247. RIZATRIPTAN BENZOATE [Suspect]
     Active Substance: RIZATRIPTAN BENZOATE
     Indication: Migraine
     Route: 065
  248. RIZATRIPTAN BENZOATE [Suspect]
     Active Substance: RIZATRIPTAN BENZOATE
     Route: 065
  249. RIZATRIPTAN BENZOATE [Suspect]
     Active Substance: RIZATRIPTAN BENZOATE
     Route: 065
  250. RIZATRIPTAN BENZOATE [Suspect]
     Active Substance: RIZATRIPTAN BENZOATE
     Dosage: RIZATRIPTAN
     Route: 065
  251. RIZATRIPTAN BENZOATE [Suspect]
     Active Substance: RIZATRIPTAN BENZOATE
     Dosage: RIZATRIPTAN
     Route: 065
  252. RIZATRIPTAN BENZOATE [Suspect]
     Active Substance: RIZATRIPTAN BENZOATE
     Dosage: RIZATRIPTAN BENZOATE
     Route: 065
  253. RIZATRIPTAN BENZOATE [Suspect]
     Active Substance: RIZATRIPTAN BENZOATE
     Dosage: RIZATRIPTAN BENZOATE
     Route: 065
  254. BOTULINUM TOXIN TYPE A [Suspect]
     Active Substance: BOTULINUM TOXIN TYPE A
     Indication: Product used for unknown indication
     Route: 065
  255. BOTULINUM TOXIN TYPE A [Suspect]
     Active Substance: BOTULINUM TOXIN TYPE A
     Dosage: POWDER FOR SOLUTION
     Route: 065
  256. BOTULINUM TOXIN TYPE A [Suspect]
     Active Substance: BOTULINUM TOXIN TYPE A
     Dosage: POWDER FOR SOLUTION
     Route: 065
  257. BOTULINUM TOXIN TYPE A [Suspect]
     Active Substance: BOTULINUM TOXIN TYPE A
     Dosage: POWDER FOR SOLUTION
     Route: 065
  258. BOTULINUM TOXIN TYPE A [Suspect]
     Active Substance: BOTULINUM TOXIN TYPE A
     Dosage: POWDER FOR SOLUTION
     Route: 065
  259. BOTULINUM TOXIN TYPE A [Suspect]
     Active Substance: BOTULINUM TOXIN TYPE A
     Route: 030
  260. BOTULINUM TOXIN TYPE A [Suspect]
     Active Substance: BOTULINUM TOXIN TYPE A
     Route: 065
  261. BOTULINUM TOXIN TYPE A [Suspect]
     Active Substance: BOTULINUM TOXIN TYPE A
     Dosage: POWDER FOR SOLUTION
     Route: 065
  262. BOTULINUM TOXIN TYPE A [Suspect]
     Active Substance: BOTULINUM TOXIN TYPE A
     Dosage: POWDER FOR SOLUTION
     Route: 065
  263. BOTULINUM TOXIN TYPE A [Suspect]
     Active Substance: BOTULINUM TOXIN TYPE A
     Dosage: POWDER FOR SOLUTION
     Route: 065
  264. BOTULINUM TOXIN TYPE A [Suspect]
     Active Substance: BOTULINUM TOXIN TYPE A
     Dosage: POWDER FOR SOLUTION
     Route: 065
  265. BOTULINUM TOXIN TYPE A [Suspect]
     Active Substance: BOTULINUM TOXIN TYPE A
     Dosage: POWDER FOR SOLUTION
     Route: 065
  266. BOTULINUM TOXIN TYPE A [Suspect]
     Active Substance: BOTULINUM TOXIN TYPE A
     Dosage: POWDER FOR SOLUTION
     Route: 065
  267. BOTULINUM TOXIN TYPE A [Suspect]
     Active Substance: BOTULINUM TOXIN TYPE A
     Dosage: POWDER FOR SOLUTION
     Route: 065
  268. BOTULINUM TOXIN TYPE A [Suspect]
     Active Substance: BOTULINUM TOXIN TYPE A
     Route: 065
  269. BOTULINUM TOXIN TYPE A [Suspect]
     Active Substance: BOTULINUM TOXIN TYPE A
     Dosage: POWDER FOR SOLUTION
     Route: 065
  270. BOTULINUM TOXIN TYPE A [Suspect]
     Active Substance: BOTULINUM TOXIN TYPE A
     Route: 065
  271. BOTULINUM TOXIN TYPE A [Suspect]
     Active Substance: BOTULINUM TOXIN TYPE A
     Route: 030
  272. AMOXICILLIN [Suspect]
     Active Substance: AMOXICILLIN
     Indication: Product used for unknown indication
     Route: 065
  273. AMOXICILLIN [Suspect]
     Active Substance: AMOXICILLIN
     Route: 065
  274. AMOXICILLIN [Suspect]
     Active Substance: AMOXICILLIN
     Dosage: AMOXICILLIN TRIHYDRATE
     Route: 065
  275. AMOXICILLIN [Suspect]
     Active Substance: AMOXICILLIN
     Dosage: AMOXICILLIN
     Route: 065
  276. AMOXICILLIN [Suspect]
     Active Substance: AMOXICILLIN
     Dosage: AMOXICILLIN
     Route: 065
  277. AMOXICILLIN [Suspect]
     Active Substance: AMOXICILLIN
     Route: 065
  278. AMOXICILLIN [Suspect]
     Active Substance: AMOXICILLIN
     Dosage: AMOXICILLIN TRIHYDRATE
     Route: 065
  279. AMOXICILLIN [Suspect]
     Active Substance: AMOXICILLIN
     Dosage: AMOXICILLIN TRIHYDRATE
     Route: 065
  280. AMOXICILLIN [Suspect]
     Active Substance: AMOXICILLIN
     Dosage: AMOXICILLIN
     Route: 065
  281. AMOXICILLIN [Suspect]
     Active Substance: AMOXICILLIN
     Dosage: AMOXICILLIN
     Route: 065
  282. METOCLOPRAMIDE [Suspect]
     Active Substance: METOCLOPRAMIDE
     Indication: Migraine
     Dosage: METOCLOPRAMIDE
     Route: 065
  283. METOCLOPRAMIDE [Suspect]
     Active Substance: METOCLOPRAMIDE
     Route: 065
  284. METOCLOPRAMIDE [Suspect]
     Active Substance: METOCLOPRAMIDE
     Dosage: METOCLOPRAMIDE HYDROCHLORIDE
     Route: 065
  285. METOCLOPRAMIDE [Suspect]
     Active Substance: METOCLOPRAMIDE
     Dosage: METOCLOPRAMIDE HYDROCHLORIDE
     Route: 065
  286. METOCLOPRAMIDE [Suspect]
     Active Substance: METOCLOPRAMIDE
     Dosage: METOCLOPRAMIDE
     Route: 065
  287. METOCLOPRAMIDE [Suspect]
     Active Substance: METOCLOPRAMIDE
     Route: 065
  288. METOCLOPRAMIDE [Suspect]
     Active Substance: METOCLOPRAMIDE
     Dosage: METOCLOPRAMIDE HYDROCHLORIDE
     Route: 065
  289. METOCLOPRAMIDE [Suspect]
     Active Substance: METOCLOPRAMIDE
     Dosage: METOCLOPRAMIDE HYDROCHLORIDE
     Route: 065
  290. METOCLOPRAMIDE [Suspect]
     Active Substance: METOCLOPRAMIDE
     Dosage: METOCLOPRAMIDE HYDROCHLORIDE
     Route: 065
  291. METOCLOPRAMIDE [Suspect]
     Active Substance: METOCLOPRAMIDE
     Dosage: METOCLOPRAMIDE HYDROCHLORIDE
     Route: 065
  292. TRAMADOL HYDROCHLORIDE [Suspect]
     Active Substance: TRAMADOL HYDROCHLORIDE
     Indication: Product used for unknown indication
     Dosage: APO-TRAMADOL
     Route: 065
  293. TRAMADOL HYDROCHLORIDE [Suspect]
     Active Substance: TRAMADOL HYDROCHLORIDE
     Dosage: APO TRAMADOL/ACET
     Route: 065
  294. DEXAMETHASONE [Suspect]
     Active Substance: DEXAMETHASONE
     Indication: Migraine
     Route: 065
  295. DEXAMETHASONE [Suspect]
     Active Substance: DEXAMETHASONE
     Route: 048
  296. DEXAMETHASONE [Suspect]
     Active Substance: DEXAMETHASONE
     Route: 065
  297. DEXAMETHASONE [Suspect]
     Active Substance: DEXAMETHASONE
     Route: 065
  298. DEXAMETHASONE [Suspect]
     Active Substance: DEXAMETHASONE
     Route: 065
  299. DEXAMETHASONE [Suspect]
     Active Substance: DEXAMETHASONE
     Route: 065
  300. ZOLMITRIPTAN [Suspect]
     Active Substance: ZOLMITRIPTAN
     Indication: Migraine
     Route: 065
  301. ZOLMITRIPTAN [Suspect]
     Active Substance: ZOLMITRIPTAN
     Route: 065
  302. ZOLMITRIPTAN [Suspect]
     Active Substance: ZOLMITRIPTAN
     Route: 065
  303. ZOLMITRIPTAN [Suspect]
     Active Substance: ZOLMITRIPTAN
     Route: 065
  304. ZOLMITRIPTAN [Suspect]
     Active Substance: ZOLMITRIPTAN
     Route: 065
  305. SCOPOLAMINE [Suspect]
     Active Substance: SCOPOLAMINE
     Indication: Migraine
     Route: 065
  306. SCOPOLAMINE [Suspect]
     Active Substance: SCOPOLAMINE
     Dosage: HYOSCINE BUTYLBROMIDE
     Route: 065
  307. SCOPOLAMINE [Suspect]
     Active Substance: SCOPOLAMINE
     Dosage: HYOSCINE BUTYLBROMIDE
     Route: 065
  308. SCOPOLAMINE [Suspect]
     Active Substance: SCOPOLAMINE
     Dosage: HYOSCINE BUTYLBROMIDE
     Route: 065
  309. SCOPOLAMINE [Suspect]
     Active Substance: SCOPOLAMINE
     Dosage: HYOSCINE BUTYLBROMIDE
     Route: 065
  310. SCOPOLAMINE [Suspect]
     Active Substance: SCOPOLAMINE
     Dosage: HYOSCINE BUTYLBROMIDE
     Route: 065
  311. SCOPOLAMINE [Suspect]
     Active Substance: SCOPOLAMINE
     Dosage: HYOSCINE BUTYLBROMIDE
     Route: 065
  312. ACETAMINOPHEN\BUTYLSCOPOLAMINE BROMIDE [Suspect]
     Active Substance: ACETAMINOPHEN\BUTYLSCOPOLAMINE BROMIDE
     Indication: Migraine
     Dosage: ACETAMINOPHEN/HYOSCINE BUTYLBROMIDE
     Route: 065
  313. INDOMETHACIN [Suspect]
     Active Substance: INDOMETHACIN
     Indication: Migraine
     Route: 054
  314. INDOMETHACIN [Suspect]
     Active Substance: INDOMETHACIN
     Route: 054
  315. INDOMETHACIN [Suspect]
     Active Substance: INDOMETHACIN
     Route: 054
  316. INDOMETHACIN [Suspect]
     Active Substance: INDOMETHACIN
     Route: 054
  317. INDOMETHACIN [Suspect]
     Active Substance: INDOMETHACIN
     Route: 054
  318. INDOMETHACIN [Suspect]
     Active Substance: INDOMETHACIN
     Route: 054
  319. INDOMETHACIN [Suspect]
     Active Substance: INDOMETHACIN
     Route: 054
  320. INDOMETHACIN [Suspect]
     Active Substance: INDOMETHACIN
     Route: 054
  321. INDOMETHACIN [Suspect]
     Active Substance: INDOMETHACIN
     Route: 054
  322. INDOMETHACIN [Suspect]
     Active Substance: INDOMETHACIN
     Route: 054
  323. INDOMETHACIN [Suspect]
     Active Substance: INDOMETHACIN
     Route: 054
  324. INDOMETHACIN [Suspect]
     Active Substance: INDOMETHACIN
     Route: 054
  325. INDOMETHACIN [Suspect]
     Active Substance: INDOMETHACIN
     Route: 054
  326. INDOMETHACIN [Suspect]
     Active Substance: INDOMETHACIN
     Route: 065
  327. INDOMETHACIN [Suspect]
     Active Substance: INDOMETHACIN
     Route: 054
  328. INDOMETHACIN [Suspect]
     Active Substance: INDOMETHACIN
     Route: 054
  329. INDOMETHACIN [Suspect]
     Active Substance: INDOMETHACIN
     Route: 065
  330. INDOMETHACIN [Suspect]
     Active Substance: INDOMETHACIN
     Route: 054
  331. INDOMETHACIN [Suspect]
     Active Substance: INDOMETHACIN
     Route: 054
  332. INDOMETHACIN [Suspect]
     Active Substance: INDOMETHACIN
     Route: 054
  333. INDOMETHACIN [Suspect]
     Active Substance: INDOMETHACIN
     Route: 065
  334. RABEPRAZOLE SODIUM [Suspect]
     Active Substance: RABEPRAZOLE SODIUM
     Indication: Migraine
     Dosage: TABLET (ENTERIC- COATED)
     Route: 065
  335. CLOTRIMAZOLE\FLUCONAZOLE [Suspect]
     Active Substance: CLOTRIMAZOLE\FLUCONAZOLE
     Indication: Product used for unknown indication
     Route: 065
  336. CLOTRIMAZOLE\FLUCONAZOLE [Suspect]
     Active Substance: CLOTRIMAZOLE\FLUCONAZOLE
     Route: 065
  337. ESOMEPRAZOLE [Suspect]
     Active Substance: ESOMEPRAZOLE
     Indication: Migraine
     Route: 065
  338. ESOMEPRAZOLE [Suspect]
     Active Substance: ESOMEPRAZOLE
     Dosage: ESOMEPRAZOLE MAGNESIUM TRIHYDRATE
     Route: 065
  339. ESOMEPRAZOLE [Suspect]
     Active Substance: ESOMEPRAZOLE
     Dosage: ESOMEPRAZOLE MAGNESIUM TRIHYDRATE
     Route: 048
  340. ESOMEPRAZOLE [Suspect]
     Active Substance: ESOMEPRAZOLE
     Dosage: ESOMEPRAZOLE MAGNESIUM TRIHYDRATE
     Route: 065
  341. ACETAMINOPHEN\DIPHENHYDRAMINE HYDROCHLORIDE [Suspect]
     Active Substance: ACETAMINOPHEN\DIPHENHYDRAMINE HYDROCHLORIDE
     Indication: Product used for unknown indication
     Dosage: ACETAMINOPHEN;DIPHENHYDRAMINE
     Route: 065
  342. METRONIDAZOLE [Suspect]
     Active Substance: METRONIDAZOLE
     Indication: Product used for unknown indication
     Dosage: NOT SPECIFIED
     Route: 065
  343. CLOTRIMAZOLE [Suspect]
     Active Substance: CLOTRIMAZOLE
     Indication: Product used for unknown indication
     Route: 065
  344. MAXALT [Suspect]
     Active Substance: RIZATRIPTAN BENZOATE
     Indication: Product used for unknown indication
     Route: 065
  345. MAXALT [Suspect]
     Active Substance: RIZATRIPTAN BENZOATE
     Route: 065
  346. MAXALT [Suspect]
     Active Substance: RIZATRIPTAN BENZOATE
     Route: 065
  347. SCOPOLAMINE HYDROBROMIDE [Suspect]
     Active Substance: SCOPOLAMINE HYDROBROMIDE
     Indication: Product used for unknown indication
     Route: 065
  348. CYMBALTA [Suspect]
     Active Substance: DULOXETINE HYDROCHLORIDE
     Indication: Product used for unknown indication
     Route: 065
  349. CYMBALTA [Suspect]
     Active Substance: DULOXETINE HYDROCHLORIDE
     Route: 065
  350. CYMBALTA [Suspect]
     Active Substance: DULOXETINE HYDROCHLORIDE
     Route: 065
  351. CYMBALTA [Suspect]
     Active Substance: DULOXETINE HYDROCHLORIDE
     Route: 065
  352. CYMBALTA [Suspect]
     Active Substance: DULOXETINE HYDROCHLORIDE
     Route: 065
  353. CYMBALTA [Suspect]
     Active Substance: DULOXETINE HYDROCHLORIDE
     Route: 065
  354. CYMBALTA [Suspect]
     Active Substance: DULOXETINE HYDROCHLORIDE
     Route: 065
  355. CYMBALTA [Suspect]
     Active Substance: DULOXETINE HYDROCHLORIDE
     Route: 065
  356. CYMBALTA [Suspect]
     Active Substance: DULOXETINE HYDROCHLORIDE
     Route: 065
  357. CYMBALTA [Suspect]
     Active Substance: DULOXETINE HYDROCHLORIDE
     Route: 065
  358. CYMBALTA [Suspect]
     Active Substance: DULOXETINE HYDROCHLORIDE
     Route: 065
  359. CYMBALTA [Suspect]
     Active Substance: DULOXETINE HYDROCHLORIDE
     Route: 065
  360. CYMBALTA [Suspect]
     Active Substance: DULOXETINE HYDROCHLORIDE
     Route: 065
  361. CYMBALTA [Suspect]
     Active Substance: DULOXETINE HYDROCHLORIDE
     Route: 065
  362. CYMBALTA [Suspect]
     Active Substance: DULOXETINE HYDROCHLORIDE
     Route: 065
  363. CYMBALTA [Suspect]
     Active Substance: DULOXETINE HYDROCHLORIDE
     Route: 065
  364. LISINOPRIL [Suspect]
     Active Substance: LISINOPRIL
     Indication: Product used for unknown indication
     Route: 065
  365. LISINOPRIL [Suspect]
     Active Substance: LISINOPRIL
     Route: 065
  366. LISINOPRIL [Suspect]
     Active Substance: LISINOPRIL
     Route: 065
  367. LISINOPRIL [Suspect]
     Active Substance: LISINOPRIL
     Route: 065
  368. LISINOPRIL [Suspect]
     Active Substance: LISINOPRIL
     Route: 065
  369. LISINOPRIL [Suspect]
     Active Substance: LISINOPRIL
     Route: 065
  370. LISINOPRIL [Suspect]
     Active Substance: LISINOPRIL
     Route: 065
  371. AZITHROMYCIN ANHYDROUS [Suspect]
     Active Substance: AZITHROMYCIN ANHYDROUS
     Indication: Migraine
     Route: 065
  372. AZITHROMYCIN ANHYDROUS [Suspect]
     Active Substance: AZITHROMYCIN ANHYDROUS
     Route: 065
  373. AZITHROMYCIN ANHYDROUS [Suspect]
     Active Substance: AZITHROMYCIN ANHYDROUS
     Route: 065
  374. AZITHROMYCIN ANHYDROUS [Suspect]
     Active Substance: AZITHROMYCIN ANHYDROUS
     Route: 065
  375. AZITHROMYCIN ANHYDROUS [Suspect]
     Active Substance: AZITHROMYCIN ANHYDROUS
     Route: 065
  376. AZITHROMYCIN ANHYDROUS [Suspect]
     Active Substance: AZITHROMYCIN ANHYDROUS
     Route: 065
  377. AZITHROMYCIN ANHYDROUS [Suspect]
     Active Substance: AZITHROMYCIN ANHYDROUS
     Route: 065
  378. DULOXETINE [Suspect]
     Active Substance: DULOXETINE
     Indication: Migraine
     Dosage: CAPSULE, DELAYED RELEASE
     Route: 065
  379. DULOXETINE [Suspect]
     Active Substance: DULOXETINE
     Dosage: CAPSULE, DELAYED RELEASE
     Route: 065
  380. PREDNISONE [Suspect]
     Active Substance: PREDNISONE
     Indication: Product used for unknown indication
     Route: 065
  381. PREDNISONE [Suspect]
     Active Substance: PREDNISONE
     Route: 065
  382. ACETAMINOPHEN\TRAMADOL HYDROCHLORIDE [Suspect]
     Active Substance: ACETAMINOPHEN\TRAMADOL HYDROCHLORIDE
     Indication: Product used for unknown indication
     Route: 065
  383. ACETAMINOPHEN\METOCLOPRAMIDE HYDROCHLORIDE [Suspect]
     Active Substance: ACETAMINOPHEN\METOCLOPRAMIDE HYDROCHLORIDE
     Indication: Migraine
     Route: 065
  384. ACECLOFENAC;TRAMADOL HYDROCHLORIDE [Concomitant]
     Indication: Product used for unknown indication
     Route: 065
  385. ACECLOFENAC;TRAMADOL HYDROCHLORIDE [Concomitant]
  386. ACETAMINOPHEN\CODEINE PHOSPHATE [Concomitant]
     Active Substance: ACETAMINOPHEN\CODEINE PHOSPHATE
     Indication: Product used for unknown indication
     Route: 065
  387. ACETAMINOPHEN\CODEINE PHOSPHATE [Concomitant]
     Active Substance: ACETAMINOPHEN\CODEINE PHOSPHATE
     Dosage: ACETAMINOPHEN/CODEINE PHOSPHATE
     Route: 065
  388. ACETAMINOPHEN\CODEINE PHOSPHATE [Concomitant]
     Active Substance: ACETAMINOPHEN\CODEINE PHOSPHATE
     Dosage: ACETAMINOPHEN/CODEINE PHOSPHATE
     Route: 065
  389. ACETAMINOPHEN\CODEINE PHOSPHATE [Concomitant]
     Active Substance: ACETAMINOPHEN\CODEINE PHOSPHATE
     Dosage: ACETAMINOPHEN/CODEINE PHOSPHATE
     Route: 065
  390. ACETAMINOPHEN\CODEINE PHOSPHATE [Concomitant]
     Active Substance: ACETAMINOPHEN\CODEINE PHOSPHATE
     Dosage: CODEINE PHOSPHATE;PARACETAMOL
  391. ACETAMINOPHEN\CODEINE PHOSPHATE [Concomitant]
     Active Substance: ACETAMINOPHEN\CODEINE PHOSPHATE
     Dosage: CODEINE PHOSPHATE;PARACETAMOL
     Route: 065
  392. ACETAMINOPHEN\CODEINE PHOSPHATE [Concomitant]
     Active Substance: ACETAMINOPHEN\CODEINE PHOSPHATE
     Dosage: CODEINE PHOSPHATE;PARACETAMOL
     Route: 065
  393. LISINOPRIL [Concomitant]
     Active Substance: LISINOPRIL
     Indication: Product used for unknown indication
     Route: 065
  394. LISINOPRIL [Concomitant]
     Active Substance: LISINOPRIL
     Route: 065
  395. LISINOPRIL [Concomitant]
     Active Substance: LISINOPRIL
     Route: 065
  396. ALBUTEROL SULFATE [Concomitant]
     Active Substance: ALBUTEROL SULFATE
     Indication: Product used for unknown indication
     Dosage: METERED-DOSE (AEROSOL)
     Route: 065
  397. CEFUROXIME [Concomitant]
     Active Substance: CEFUROXIME
     Indication: Product used for unknown indication
     Dosage: CEFUROXIME SODIUM
  398. CEFUROXIME [Concomitant]
     Active Substance: CEFUROXIME
     Dosage: CEFUROXIME AXETIL
     Route: 065
  399. CEFUROXIME [Concomitant]
     Active Substance: CEFUROXIME
     Dosage: CEFUROXIME AXETIL
     Route: 065
  400. CEFUROXIME [Concomitant]
     Active Substance: CEFUROXIME
     Dosage: CEFUROXIME AXETIL
     Route: 065
  401. CEPHALEXIN [Concomitant]
     Active Substance: CEPHALEXIN
     Indication: Product used for unknown indication
     Dosage: NOT SPECIFIED
  402. CEPHALEXIN [Concomitant]
     Active Substance: CEPHALEXIN
     Dosage: CEPHALEXIN [CEFALEXIN]
  403. CEPHALEXIN [Concomitant]
     Active Substance: CEPHALEXIN
     Dosage: CEPHALEXIN MONOHYDRATE
     Route: 065
  404. CEPHALEXIN [Concomitant]
     Active Substance: CEPHALEXIN
     Dosage: CEPHALEXIN [CEFALEXIN]
  405. CEPHALEXIN [Concomitant]
     Active Substance: CEPHALEXIN
     Dosage: CEPHALEXIN [CEFALEXIN]
  406. DANAZOL [Concomitant]
     Active Substance: DANAZOL
     Indication: Product used for unknown indication
     Route: 065
  407. DANAZOL [Concomitant]
     Active Substance: DANAZOL
     Route: 065
  408. DANAZOL [Concomitant]
     Active Substance: DANAZOL
     Route: 065
  409. DANAZOL [Concomitant]
     Active Substance: DANAZOL
     Route: 065
  410. DANAZOL [Concomitant]
     Active Substance: DANAZOL
     Route: 065
  411. DANAZOL [Concomitant]
     Active Substance: DANAZOL
  412. DANAZOL [Concomitant]
     Active Substance: DANAZOL
  413. CYMBALTA [Concomitant]
     Active Substance: DULOXETINE HYDROCHLORIDE
     Indication: Product used for unknown indication
  414. CYMBALTA [Concomitant]
     Active Substance: DULOXETINE HYDROCHLORIDE
  415. CYMBALTA [Concomitant]
     Active Substance: DULOXETINE HYDROCHLORIDE
  416. CYMBALTA [Concomitant]
     Active Substance: DULOXETINE HYDROCHLORIDE
  417. DANAZOL [Concomitant]
     Active Substance: DANAZOL
     Indication: Product used for unknown indication
     Route: 065
  418. DEXAMETHASONE [Concomitant]
     Active Substance: DEXAMETHASONE
     Indication: Product used for unknown indication
     Route: 065
  419. ELAVIL [Concomitant]
     Active Substance: AMITRIPTYLINE HYDROCHLORIDE
     Indication: Product used for unknown indication
  420. ELAVIL [Concomitant]
     Active Substance: AMITRIPTYLINE HYDROCHLORIDE
  421. FERROUS FUMARATE [Concomitant]
     Active Substance: FERROUS FUMARATE
     Indication: Product used for unknown indication
     Dosage: NOT SPECIFIED
     Route: 065
  422. FLUOXETINE [Concomitant]
     Active Substance: FLUOXETINE HYDROCHLORIDE
     Indication: Product used for unknown indication
     Dosage: NOT SPECIFIED
     Route: 065
  423. FLUOXETINE [Concomitant]
     Active Substance: FLUOXETINE HYDROCHLORIDE
  424. FLUOXETINE [Concomitant]
     Active Substance: FLUOXETINE HYDROCHLORIDE
     Dosage: FLUOXETINE HYDROCHLORIDE
  425. FLUTICASONE [Concomitant]
     Active Substance: FLUTICASONE
     Indication: Product used for unknown indication
     Route: 065
  426. FLUTICASONE [Concomitant]
     Active Substance: FLUTICASONE
     Route: 065
  427. FLUTICASONE [Concomitant]
     Active Substance: FLUTICASONE
     Route: 065
  428. FLUTICASONE [Concomitant]
     Active Substance: FLUTICASONE
     Route: 055
  429. FLUTICASONE [Concomitant]
     Active Substance: FLUTICASONE
     Route: 055
  430. FLUTICASONE [Concomitant]
     Active Substance: FLUTICASONE
     Dosage: FLUTICASONE PROPIONATE
     Route: 065
  431. FLUTICASONE [Concomitant]
     Active Substance: FLUTICASONE
     Dosage: FLUTICASONE PROPIONATE
     Route: 065
  432. FLUTICASONE [Concomitant]
     Active Substance: FLUTICASONE
     Dosage: FLUTICASONE PROPIONATE
     Route: 065
  433. FLUTICASONE [Concomitant]
     Active Substance: FLUTICASONE
     Route: 065
  434. FLUTICASONE [Concomitant]
     Active Substance: FLUTICASONE
     Route: 065
  435. FLUTICASONE [Concomitant]
     Active Substance: FLUTICASONE
     Route: 065
  436. FLUTICASONE [Concomitant]
     Active Substance: FLUTICASONE
     Dosage: FLUTICASONE
     Route: 065
  437. FROVATRIPTAN [Concomitant]
     Active Substance: FROVATRIPTAN
     Indication: Product used for unknown indication
     Dosage: FROVATRIPTAN SUCCINATE
     Route: 065
  438. FROVATRIPTAN [Concomitant]
     Active Substance: FROVATRIPTAN
     Route: 065
  439. FROVATRIPTAN [Concomitant]
     Active Substance: FROVATRIPTAN
     Dosage: FROVATRIPTAN
     Route: 065
  440. FROVATRIPTAN [Concomitant]
     Active Substance: FROVATRIPTAN
     Dosage: FROVATRIPTAN SUCCINATE
     Route: 065
  441. MACROBID [Concomitant]
     Active Substance: NITROFURANTOIN\NITROFURANTOIN MONOHYDRATE
     Indication: Product used for unknown indication
     Route: 065
  442. MACROBID [Concomitant]
     Active Substance: NITROFURANTOIN\NITROFURANTOIN MONOHYDRATE
     Route: 065
  443. MACROBID [Concomitant]
     Active Substance: NITROFURANTOIN\NITROFURANTOIN MONOHYDRATE
     Route: 065
  444. MACROBID [Concomitant]
     Active Substance: NITROFURANTOIN\NITROFURANTOIN MONOHYDRATE
     Route: 065
  445. POLYETHYLENE GLYCOLS [Concomitant]
     Active Substance: POLYETHYLENE GLYCOLS
     Indication: Product used for unknown indication
  446. METOCLOPRAMIDE [Concomitant]
     Active Substance: METOCLOPRAMIDE
     Indication: Product used for unknown indication
  447. METOCLOPRAMIDE [Concomitant]
     Active Substance: METOCLOPRAMIDE
     Route: 065
  448. METOCLOPRAMIDE [Concomitant]
     Active Substance: METOCLOPRAMIDE
     Route: 065
  449. MORPHINE SULFATE [Concomitant]
     Active Substance: MORPHINE SULFATE
     Indication: Product used for unknown indication
  450. MORPHINE SULFATE [Concomitant]
     Active Substance: MORPHINE SULFATE
  451. NAPROXEN [Concomitant]
     Active Substance: NAPROXEN
     Indication: Product used for unknown indication
     Dosage: NOT SPECIFIED
  452. NAPROXEN [Concomitant]
     Active Substance: NAPROXEN
  453. NAPROXEN [Concomitant]
     Active Substance: NAPROXEN
  454. NASONEX [Concomitant]
     Active Substance: MOMETASONE FUROATE
     Indication: Product used for unknown indication
     Route: 065
  455. NASONEX [Concomitant]
     Active Substance: MOMETASONE FUROATE
     Dosage: SPRAY, METERED DOSE
     Route: 050
  456. NASONEX [Concomitant]
     Active Substance: MOMETASONE FUROATE
     Dosage: SPRAY, METERED DOSE
     Route: 065
  457. NASONEX [Concomitant]
     Active Substance: MOMETASONE FUROATE
     Dosage: SPRAY, METERED DOSE
     Route: 065
  458. NASONEX [Concomitant]
     Active Substance: MOMETASONE FUROATE
     Dosage: SPRAY, METERED DOSE
     Route: 065
  459. NASONEX [Concomitant]
     Active Substance: MOMETASONE FUROATE
     Route: 065
  460. NASONEX [Concomitant]
     Active Substance: MOMETASONE FUROATE
     Route: 050
  461. NITROFURANTOIN [Concomitant]
     Active Substance: NITROFURANTOIN
     Indication: Product used for unknown indication
     Dosage: NOT SPECIFIED
     Route: 065
  462. NITROFURANTOIN [Concomitant]
     Active Substance: NITROFURANTOIN
     Dosage: NOT SPECIFIED
     Route: 065
  463. OSELTAMIVIR [Concomitant]
     Active Substance: OSELTAMIVIR
     Indication: Product used for unknown indication
  464. OSELTAMIVIR [Concomitant]
     Active Substance: OSELTAMIVIR
  465. PANTOPRAZOLE [Concomitant]
     Active Substance: PANTOPRAZOLE
     Indication: Product used for unknown indication
     Dosage: PANTOPRAZOLE
  466. PANTOPRAZOLE [Concomitant]
     Active Substance: PANTOPRAZOLE
     Dosage: PANTOPRAZOLE
  467. PANTOPRAZOLE [Concomitant]
     Active Substance: PANTOPRAZOLE
     Dosage: PANTOPRAZOLE SODIUM
  468. PANTOPRAZOLE [Concomitant]
     Active Substance: PANTOPRAZOLE
     Dosage: PANTOPRAZOLE SODIUM
  469. STATEX [Concomitant]
     Indication: Product used for unknown indication
     Route: 065
  470. SULFAMETHOXAZOLE\TRIMETHOPRIM [Concomitant]
     Active Substance: SULFAMETHOXAZOLE\TRIMETHOPRIM
     Indication: Product used for unknown indication
     Route: 065
  471. SULFAMETHOXAZOLE\TRIMETHOPRIM [Concomitant]
     Active Substance: SULFAMETHOXAZOLE\TRIMETHOPRIM
     Route: 065
  472. SULFAMETHOXAZOLE\TRIMETHOPRIM [Concomitant]
     Active Substance: SULFAMETHOXAZOLE\TRIMETHOPRIM
     Route: 065
  473. SULFAMETHOXAZOLE\TRIMETHOPRIM [Concomitant]
     Active Substance: SULFAMETHOXAZOLE\TRIMETHOPRIM
     Route: 065
  474. SULFAMETHOXAZOLE\TRIMETHOPRIM [Concomitant]
     Active Substance: SULFAMETHOXAZOLE\TRIMETHOPRIM
     Route: 065
  475. SULFATRIM [Concomitant]
     Active Substance: SULFAMETHOXAZOLE\TRIMETHOPRIM
     Indication: Product used for unknown indication
     Route: 065
  476. SULFATRIM [Concomitant]
     Active Substance: SULFAMETHOXAZOLE\TRIMETHOPRIM
     Route: 065
  477. SULFATRIM [Concomitant]
     Active Substance: SULFAMETHOXAZOLE\TRIMETHOPRIM
     Route: 065
  478. SULFATRIM [Concomitant]
     Active Substance: SULFAMETHOXAZOLE\TRIMETHOPRIM
     Route: 065
  479. SULFATRIM [Concomitant]
     Active Substance: SULFAMETHOXAZOLE\TRIMETHOPRIM
     Route: 065
  480. ACETAMINOPHEN\CAFFEINE\CODEINE [Concomitant]
     Active Substance: ACETAMINOPHEN\CAFFEINE\CODEINE
     Indication: Product used for unknown indication
  481. PREDNISONE [Concomitant]
     Active Substance: PREDNISONE
     Indication: Product used for unknown indication
  482. PREDNISONE [Concomitant]
     Active Substance: PREDNISONE
  483. ACETAMINOPHEN\TRAMADOL HYDROCHLORIDE [Concomitant]
     Active Substance: ACETAMINOPHEN\TRAMADOL HYDROCHLORIDE
     Indication: Product used for unknown indication
     Route: 065
  484. ACETAMINOPHEN\TRAMADOL HYDROCHLORIDE [Concomitant]
     Active Substance: ACETAMINOPHEN\TRAMADOL HYDROCHLORIDE
     Route: 065
  485. ACETAMINOPHEN\TRAMADOL HYDROCHLORIDE [Concomitant]
     Active Substance: ACETAMINOPHEN\TRAMADOL HYDROCHLORIDE
     Route: 065
  486. ACETAMINOPHEN\TRAMADOL HYDROCHLORIDE [Concomitant]
     Active Substance: ACETAMINOPHEN\TRAMADOL HYDROCHLORIDE
     Dosage: ACETAMINOPHEN/TRAMADOL
     Route: 065
  487. ALLOPURINOL [Concomitant]
     Active Substance: ALLOPURINOL
     Indication: Product used for unknown indication
     Route: 065
  488. AMOXICILLIN [Concomitant]
     Active Substance: AMOXICILLIN
     Indication: Product used for unknown indication
     Dosage: AMOXICILIN
  489. AMOXICILLIN [Concomitant]
     Active Substance: AMOXICILLIN
     Dosage: AMOXICILIN TRIHYDRATE
  490. AMOXICILLIN [Concomitant]
     Active Substance: AMOXICILLIN
     Dosage: AMOXICILIN TRIHYDRATE
  491. AZITHROMYCIN [Concomitant]
     Active Substance: AZITHROMYCIN
     Indication: Product used for unknown indication
  492. AZITHROMYCIN [Concomitant]
     Active Substance: AZITHROMYCIN
     Dosage: AZITHROMYCIN DIHYDRATE
  493. METRONIDAZOLE [Concomitant]
     Active Substance: METRONIDAZOLE
     Indication: Migraine
  494. VENLAFAXINE [Concomitant]
     Active Substance: VENLAFAXINE HYDROCHLORIDE
     Indication: Product used for unknown indication
  495. FROVA [Concomitant]
     Active Substance: FROVATRIPTAN SUCCINATE
     Indication: Product used for unknown indication
  496. LISINOPRIL [Concomitant]
     Active Substance: LISINOPRIL
     Indication: Product used for unknown indication
  497. LISINOPRIL [Concomitant]
     Active Substance: LISINOPRIL
  498. LISINOPRIL [Concomitant]
     Active Substance: LISINOPRIL
  499. ALBUTEROL SULFATE [Concomitant]
     Active Substance: ALBUTEROL SULFATE
     Indication: Product used for unknown indication
  500. SIMVASTATIN [Concomitant]
     Active Substance: SIMVASTATIN
     Indication: Product used for unknown indication

REACTIONS (11)
  - Drug intolerance [Recovered/Resolved]
  - Dysphonia [Recovered/Resolved]
  - Swelling face [Recovered/Resolved]
  - Swollen tongue [Recovered/Resolved]
  - Hypersensitivity [Recovered/Resolved]
  - Angioedema [Recovered/Resolved]
  - Headache [Recovered/Resolved]
  - Drug ineffective [Recovered/Resolved]
  - Drug ineffective for unapproved indication [Recovered/Resolved]
  - Product use in unapproved indication [Recovered/Resolved]
  - Off label use [Recovered/Resolved]
